FAERS Safety Report 4786483-6 (Version None)
Quarter: 2005Q3

REPORT INFORMATION
  Report Type: 
  Country: None (occurrence: None)
  Receive Date: 20050927
  Receipt Date: 20050719
  Transmission Date: 20060218
  Serious: No
  Sender: FDA-Public Use
  Company Number: USA0507103219

PATIENT
  Age: 12 Year
  Sex: Male
  Weight: 41 kg

DRUGS (5)
  1. STRATTERA [Suspect]
     Indication: ATTENTION DEFICIT/HYPERACTIVITY DISORDER
     Dosage: 40 MG DAY
     Dates: start: 20050501
  2. ADVAIR DISKUS 100/50 [Concomitant]
  3. SINGULAIR (MONTELUKAST  /01362601/) [Concomitant]
  4. ALLEGRA [Concomitant]
  5. NASACORT [Concomitant]

REACTIONS (3)
  - AGITATION [None]
  - DRUG INEFFECTIVE [None]
  - MOOD SWINGS [None]
